FAERS Safety Report 9232266 (Version 1)
Quarter: 2013Q2

REPORT INFORMATION
  Report Type: Spontaneous
  Country: FR (occurrence: FR)
  Receive Date: 20130415
  Receipt Date: 20130415
  Transmission Date: 20140414
  Serious: Yes (Hospitalization)
  Sender: FDA-Public Use
  Company Number: FR-009507513-1304FRA004655

PATIENT
  Age: 31 Year
  Sex: Female
  Weight: 100 kg

DRUGS (3)
  1. NORSET [Suspect]
     Indication: INSOMNIA
     Dosage: 15 MG, QD
     Route: 048
     Dates: start: 20120115, end: 20120214
  2. CHAMPIX [Suspect]
     Indication: PRODUCT USED FOR UNKNOWN INDICATION
     Dosage: 2 MG, QD
     Route: 048
     Dates: start: 20120103, end: 20120214
  3. MUCOMYST [Suspect]
     Indication: PRODUCT USED FOR UNKNOWN INDICATION
     Dosage: 2.4 G, QD
     Route: 048
     Dates: start: 20120201, end: 20120214

REACTIONS (1)
  - Psoriasis [Not Recovered/Not Resolved]
